FAERS Safety Report 24742816 (Version 2)
Quarter: 2025Q2

REPORT INFORMATION
  Report Type: Spontaneous
  Country: JP (occurrence: JP)
  Receive Date: 20241217
  Receipt Date: 20250529
  Transmission Date: 20250716
  Serious: Yes (Life-Threatening)
  Sender: PFIZER
  Company Number: JP-PFIZER INC-202400321693

PATIENT
  Age: 79 Year
  Sex: Female

DRUGS (12)
  1. PAXLOVID [Suspect]
     Active Substance: NIRMATRELVIR\RITONAVIR
     Indication: COVID-19 treatment
     Dosage: [NIRMATRELVIR 300 MG]/[RITONAVIR 100 MG];, 2X/DAY FROM 18NOV2024 AFTER DINNER TO 20NOV2024 AFTER BRE
     Route: 048
     Dates: start: 20241118, end: 20241120
  2. CALONAL [Suspect]
     Active Substance: ACETAMINOPHEN
     Indication: Pyrexia
     Route: 048
     Dates: start: 20241118, end: 20241120
  3. HERBALS [Suspect]
     Active Substance: HERBALS
     Indication: Nasopharyngitis
     Dosage: 2.5 MG, 3X/DAY BEFORE EACH MEAL FROM 18NOV2024 BEFORE DINNER TO 20NOV2024 BEFORE BREAKFAST, TSUMURA
     Route: 048
     Dates: start: 20241118, end: 20241120
  4. MOSAPRIDE CITRATE [Concomitant]
     Active Substance: MOSAPRIDE CITRATE
     Indication: Gastritis
     Dosage: 1 DF, 2X/DAY AFTER BREAKFAST AND DINNER, ^SANDOZ^
     Route: 048
  5. METFORMIN HYDROCHLORIDE\VILDAGLIPTIN [Concomitant]
     Active Substance: METFORMIN HYDROCHLORIDE\VILDAGLIPTIN
     Indication: Diabetes mellitus
     Dosage: 1 DF, 2X/DAY AFTER BREAKFAST AND DINNER
     Route: 048
  6. TOFOGLIFLOZIN [Concomitant]
     Active Substance: TOFOGLIFLOZIN
     Indication: Diabetes mellitus
     Dosage: 1 DF, 1X/DAY AFTER BREAKFAST
     Route: 048
  7. ATENOLOL [Concomitant]
     Active Substance: ATENOLOL
     Indication: Hypertension
     Dosage: 1 DF, 1X/DAY AFTER BREAKFAST, ^SAWAI^
     Route: 048
  8. AMLODIPINE BESYLATE\VALSARTAN [Concomitant]
     Active Substance: AMLODIPINE BESYLATE\VALSARTAN
     Indication: Diabetes mellitus
     Dosage: 1 DF, 1X/DAY AFTER BREAKFAST, ^SANDOZ^
     Route: 048
  9. RABEPRAZOLE SODIUM [Concomitant]
     Active Substance: RABEPRAZOLE SODIUM
     Indication: Gastritis
     Dosage: 1 DF, 1X/DAY AFTER BREAKFAST, ^CHEMIPHAR^
     Route: 048
  10. PEMAFIBRATE [Concomitant]
     Active Substance: PEMAFIBRATE
     Indication: Dyslipidaemia
     Dosage: 1 DF, 1X/DAY AFTER DINNER, XR TABLETS
     Route: 048
  11. ROSUVASTATIN OD DSEP [Concomitant]
     Indication: Dyslipidaemia
     Dosage: 1 DF, 1X/DAY AFTER DINNER
     Route: 048
  12. SENNOSIDE SEIKO [Concomitant]
     Indication: Constipation
     Dosage: 2 DF, 1X/DAY AFTER DINNER
     Route: 048

REACTIONS (1)
  - Anaphylactic reaction [Recovered/Resolved]

NARRATIVE: CASE EVENT DATE: 20241118
